FAERS Safety Report 8397127-9 (Version None)
Quarter: 2012Q2

REPORT INFORMATION
  Report Type: 
  Country: None (occurrence: None)
  Receive Date: 20120530
  Receipt Date: 20120524
  Transmission Date: 20120825
  Serious: Yes (Hospitalization, Other)
  Sender: FDA-Public Use
  Company Number: BR-ROCHE-759501

PATIENT
  Sex: Female
  Weight: 55.6 kg

DRUGS (9)
  1. WARFARIN SODIUM [Concomitant]
  2. MABTHERA [Suspect]
     Indication: RHEUMATOID ARTHRITIS
     Route: 042
     Dates: start: 20100401, end: 20100415
  3. MABTHERA [Suspect]
     Route: 042
  4. PREDNISONE TAB [Concomitant]
     Indication: ANALGESIC THERAPY
  5. ASPIRIN [Concomitant]
  6. ACETAMINOPHEN AND TRAMADOL HCL [Concomitant]
     Indication: ANALGESIC THERAPY
  7. ENALAPRIL MALEATE [Concomitant]
  8. CRESTOR [Concomitant]
  9. MABTHERA [Suspect]
     Route: 042

REACTIONS (10)
  - CEREBROVASCULAR ACCIDENT [None]
  - DRUG EFFECT DELAYED [None]
  - PAIN [None]
  - RHEUMATOID ARTHRITIS [None]
  - ILL-DEFINED DISORDER [None]
  - SWELLING [None]
  - DIABETES MELLITUS [None]
  - BLOOD CHOLESTEROL INCREASED [None]
  - CARDIAC DISORDER [None]
  - HYPERTENSION [None]
